FAERS Safety Report 5407668-1 (Version None)
Quarter: 2007Q3

REPORT INFORMATION
  Report Type: 
  Country: None (occurrence: None)
  Receive Date: 20070807
  Receipt Date: 20070726
  Transmission Date: 20080115
  Serious: Yes (Hospitalization, Other)
  Sender: FDA-Public Use
  Company Number: US-PFIZER INC-2007063245

PATIENT
  Sex: Male
  Weight: 89.8 kg

DRUGS (11)
  1. PROCARDIA [Suspect]
     Indication: TRANSIENT ISCHAEMIC ATTACK
     Dates: start: 19920101, end: 20070601
  2. NIFEDIPINE [Suspect]
     Indication: TRANSIENT ISCHAEMIC ATTACK
  3. EXTRA STRENGTH WATER PILL WITH POTASSIUM [Concomitant]
  4. LASIX [Concomitant]
  5. PLAVIX [Concomitant]
  6. ALDACTONE [Concomitant]
  7. TAPAZOLE [Concomitant]
  8. PROTONIX [Concomitant]
  9. ECOTRIN [Concomitant]
  10. CENTRUM [Concomitant]
  11. ALLOPURINOL [Concomitant]

REACTIONS (7)
  - ASTHENIA [None]
  - BLOOD SODIUM DECREASED [None]
  - CELLULITIS [None]
  - DYSPNOEA [None]
  - HAEMORRHAGE [None]
  - PARAESTHESIA [None]
  - WEIGHT INCREASED [None]
